FAERS Safety Report 10444448 (Version 1)
Quarter: 2014Q3

REPORT INFORMATION
  Report Type: Spontaneous
  Country: RU (occurrence: RU)
  Receive Date: 20140910
  Receipt Date: 20140910
  Transmission Date: 20150326
  Serious: Yes (Other)
  Sender: FDA-Public Use
  Company Number: RU-ROCHE-1459135

PATIENT
  Age: 52 Year
  Sex: Female

DRUGS (17)
  1. NAVELBINE [Concomitant]
     Active Substance: VINORELBINE TARTRATE
     Indication: BREAST CANCER
     Route: 065
     Dates: start: 2014, end: 2014
  2. BONDRONAT [Concomitant]
     Active Substance: IBANDRONIC ACID
     Indication: PRODUCT USED FOR UNKNOWN INDICATION
     Route: 065
  3. FLUOROURACIL. [Concomitant]
     Active Substance: FLUOROURACIL
     Dosage: CYCLE 1
     Route: 065
  4. CYCLOPHOSPHAN [Concomitant]
     Active Substance: CYCLOPHOSPHAMIDE
     Dosage: 600 MG/M 2
     Route: 065
  5. XELODA [Suspect]
     Active Substance: CAPECITABINE
     Indication: BREAST CANCER
     Route: 065
     Dates: start: 20131018, end: 20140207
  6. HERCEPTIN [Suspect]
     Active Substance: TRASTUZUMAB
     Route: 065
     Dates: start: 20140324
  7. CYCLOPHOSPHAN [Concomitant]
     Active Substance: CYCLOPHOSPHAMIDE
     Indication: BREAST CANCER
     Dosage: CYCLE 1
     Route: 042
     Dates: start: 2014
  8. ZOLEDRONIC ACID [Concomitant]
     Active Substance: ZOLEDRONIC ACID
     Route: 065
  9. DOXORUBICINE [Concomitant]
     Active Substance: DOXORUBICIN
     Indication: BREAST CANCER
     Dosage: CYCLE 1, 25 MG/M2
     Route: 065
     Dates: start: 2014
  10. HERCEPTIN [Suspect]
     Active Substance: TRASTUZUMAB
     Indication: BREAST CANCER
     Route: 065
     Dates: start: 20130704, end: 20140109
  11. ARIMIDEX [Concomitant]
     Active Substance: ANASTROZOLE
     Indication: BREAST CANCER
     Route: 065
     Dates: start: 20130614, end: 20131018
  12. ZOMETA [Concomitant]
     Active Substance: ZOLEDRONIC ACID
     Route: 065
  13. XELODA [Suspect]
     Active Substance: CAPECITABINE
     Route: 065
     Dates: start: 20140306, end: 2014
  14. DOXORUBICINE [Concomitant]
     Active Substance: DOXORUBICIN
     Dosage: S = 1.53 M2
     Route: 065
  15. NAVELBINE [Concomitant]
     Active Substance: VINORELBINE TARTRATE
     Dosage: DAYS 1 AND 8 OF A 3-WEEK CYCLE
     Route: 065
     Dates: start: 2014
  16. PACLITAXEL. [Concomitant]
     Active Substance: PACLITAXEL
     Dosage: 6 CYCLES
     Route: 042
  17. TAXOTERE [Concomitant]
     Active Substance: DOCETAXEL
     Dosage: 75 MG/M2,  6 CYCLES
     Route: 042

REACTIONS (11)
  - Ejection fraction decreased [Unknown]
  - Tracheitis [Recovered/Resolved]
  - Sensory loss [Not Recovered/Not Resolved]
  - Chest pain [Unknown]
  - Fatigue [Not Recovered/Not Resolved]
  - Hypokinesia [Unknown]
  - Disease progression [Not Recovered/Not Resolved]
  - Neoplasm skin [Unknown]
  - Back pain [Unknown]
  - Asthenia [Not Recovered/Not Resolved]
  - Headache [Not Recovered/Not Resolved]

NARRATIVE: CASE EVENT DATE: 20131226
